FAERS Safety Report 9156579 (Version 5)
Quarter: 2013Q3

REPORT INFORMATION
  Report Type: Spontaneous
  Country: US (occurrence: None)
  Receive Date: 20130208
  Receipt Date: 20130923
  Transmission Date: 20140515
  Serious: Yes (Hospitalization, Other)
  Sender: FDA-Public Use
  Company Number: 2013AP001505

PATIENT
  Age: 66 Year
  Sex: Male

DRUGS (7)
  1. ATORVASTATIN [Suspect]
     Indication: BLOOD CHOLESTEROL INCREASED
     Route: 048
     Dates: start: 201208, end: 201211
  2. ATORVASTATIN [Suspect]
     Route: 048
     Dates: start: 201208, end: 201211
  3. ENALAPRIL MALEATE [Concomitant]
  4. AMLODIPINE [Concomitant]
  5. ATENOLOL [Concomitant]
  6. WARFARIN [Concomitant]
  7. PREDNISONE [Concomitant]

REACTIONS (6)
  - Pain [None]
  - Paralysis [None]
  - Muscular weakness [None]
  - Rhabdomyolysis [None]
  - Muscular weakness [None]
  - Myopathy [None]
